FAERS Safety Report 19589295 (Version 3)
Quarter: 2021Q3

REPORT INFORMATION
  Report Type: Spontaneous
  Country: US (occurrence: US)
  Receive Date: 20210721
  Receipt Date: 20210803
  Transmission Date: 20211014
  Serious: No
  Sender: FDA-Public Use
  Company Number: US-AMGEN-USASP2021108408

PATIENT
  Age: 65 Year
  Sex: Male
  Weight: 112 kg

DRUGS (5)
  1. HERCEPTIN [Concomitant]
     Active Substance: TRASTUZUMAB
     Dosage: UNK (6 CYCLES)
     Dates: start: 20210408
  2. NEULASTA [Suspect]
     Active Substance: PEGFILGRASTIM
     Indication: PROPHYLAXIS
     Dosage: 6 MILLIGRAM
     Route: 065
     Dates: start: 20210408
  3. CARBOPLATIN. [Concomitant]
     Active Substance: CARBOPLATIN
     Dosage: UNK (6 CYCLES)
     Dates: start: 20210408
  4. TAXOTERE [Concomitant]
     Active Substance: DOCETAXEL
     Dosage: UNK (6 CYCLES)
     Dates: start: 20210408
  5. PERJETA [Concomitant]
     Active Substance: PERTUZUMAB
     Dosage: UNK (6 CYCLES)
     Dates: start: 20210408

REACTIONS (3)
  - Device issue [Unknown]
  - Expired device used [Unknown]
  - Device adhesion issue [Unknown]

NARRATIVE: CASE EVENT DATE: 20210702
